FAERS Safety Report 7770043-9 (Version None)
Quarter: 2011Q3

REPORT INFORMATION
  Report Type: 
  Country: None (occurrence: None)
  Receive Date: 20110922
  Receipt Date: 20110125
  Transmission Date: 20111222
  Serious: No
  Sender: FDA-Public Use
  Company Number: US-ASTRAZENECA-2011SE04487

PATIENT
  Sex: Male

DRUGS (1)
  1. SEROQUEL [Suspect]
     Indication: BIPOLAR DISORDER
     Route: 048

REACTIONS (5)
  - FEELING OF DESPAIR [None]
  - INSOMNIA [None]
  - MALAISE [None]
  - DRUG DOSE OMISSION [None]
  - IMPAIRED WORK ABILITY [None]
